FAERS Safety Report 9204827 (Version 3)
Quarter: 2013Q2

REPORT INFORMATION
  Report Type: Spontaneous
  Country: US (occurrence: US)
  Receive Date: 20130402
  Receipt Date: 20130409
  Transmission Date: 20140414
  Serious: Yes (Hospitalization, Other)
  Sender: FDA-Public Use
  Company Number: US-PFIZER INC-2013101800

PATIENT
  Age: 56 Year
  Sex: Male

DRUGS (1)
  1. MORPHINE SULFATE [Suspect]
     Indication: ANALGESIC THERAPY
     Dosage: 120 MG, 2X/DAY
     Route: 048

REACTIONS (5)
  - Stupor [Unknown]
  - Urinary tract infection [Unknown]
  - Renal tubular necrosis [Recovering/Resolving]
  - Metabolic encephalopathy [Unknown]
  - Renal failure acute [Recovering/Resolving]
